FAERS Safety Report 23034484 (Version 1)
Quarter: 2023Q4

REPORT INFORMATION
  Report Type: Spontaneous
  Country: US (occurrence: US)
  Receive Date: 20231005
  Receipt Date: 20231005
  Transmission Date: 20240109
  Serious: No
  Sender: FDA-Public Use
  Company Number: US-MYLANLABS-2023M1102519

PATIENT
  Sex: Female
  Weight: 71.21 kg

DRUGS (2)
  1. CLONIDINE TRANSDERMAL SYSTEM [Suspect]
     Active Substance: CLONIDINE
     Indication: Blood pressure measurement
     Dosage: 0.2 MILLIGRAM, QD (ONCE EVERY 7 DAYS)
     Route: 062
  2. CLONIDINE [Concomitant]
     Active Substance: CLONIDINE
     Indication: Hypertension
     Dosage: 1 MILLIGRAM,(PILLS)
     Route: 065

REACTIONS (2)
  - Blister [Unknown]
  - Pruritus [Unknown]
